FAERS Safety Report 11044906 (Version 1)
Quarter: 2015Q2

REPORT INFORMATION
  Report Type: Spontaneous
  Country: GB (occurrence: GB)
  Receive Date: 20150417
  Receipt Date: 20150417
  Transmission Date: 20150821
  Serious: Yes (Other)
  Sender: FDA-Public Use
  Company Number: GB-GLAXOSMITHKLINE INC.-GB2015049908

PATIENT
  Age: 67 Year
  Sex: Female
  Weight: 65.31 kg

DRUGS (4)
  1. EZETROL [Concomitant]
     Active Substance: EZETIMIBE
  2. PROGUANIL HYDROCHLORIDE. [Suspect]
     Active Substance: PROGUANIL HYDROCHLORIDE
     Indication: MALARIA PROPHYLAXIS
     Route: 048
     Dates: start: 20150309, end: 20150317
  3. RAMIPRIL. [Concomitant]
     Active Substance: RAMIPRIL
  4. ATOVAQUONE. [Suspect]
     Active Substance: ATOVAQUONE
     Indication: MALARIA PROPHYLAXIS
     Route: 048
     Dates: start: 20150309, end: 20150317

REACTIONS (5)
  - Depression [Recovered/Resolved]
  - Cough [Recovering/Resolving]
  - Fatigue [Recovered/Resolved]
  - Nausea [Recovered/Resolved]
  - Decreased appetite [Recovered/Resolved]

NARRATIVE: CASE EVENT DATE: 20150315
